FAERS Safety Report 11082105 (Version 1)
Quarter: 2015Q2

REPORT INFORMATION
  Report Type: Spontaneous
  Country: IT (occurrence: None)
  Receive Date: 20150429
  Receipt Date: 20150429
  Transmission Date: 20150821
  Serious: Yes (Other)
  Sender: FDA-Public Use
  Company Number: FK201501977

PATIENT
  Age: 58 Year
  Sex: Female

DRUGS (5)
  1. SOLDESAM (DEXAMETHASONE SODIUM PHOSPHATE) [Concomitant]
  2. OXALIPLATIN 5 MG/ML, CONCENTRATE FOR SOLUTION FOR INFUSION [Suspect]
     Active Substance: OXALIPLATIN
     Indication: PRODUCT USED FOR UNKNOWN INDICATION
     Dosage: 125 MG, TOTAL
     Route: 041
     Dates: start: 20150402, end: 20150402
  3. FLUOROURACIL TEVA [Suspect]
     Active Substance: FLUOROURACIL
     Indication: PRODUCT USED FOR UNKNOWN INDICATION
     Dosage: 2400 MG, TOTAL
     Route: 042
     Dates: start: 20150402, end: 20150403
  4. LEVOFOLENE (CALCIUM LEVOFOLINATE) [Concomitant]
  5. ZOFRAN (ONDANSETRON HYDROCHLORIDE) [Concomitant]

REACTIONS (1)
  - Supraventricular tachycardia [None]

NARRATIVE: CASE EVENT DATE: 20150402
